FAERS Safety Report 6229238-8 (Version None)
Quarter: 2009Q2

REPORT INFORMATION
  Report Type: 
  Country: None (occurrence: None)
  Receive Date: 20090611
  Receipt Date: 20090611
  Transmission Date: 20091009
  Serious: Yes (Life-Threatening, Hospitalization)
  Sender: FDA-Public Use
  Company Number: None

PATIENT
  Age: 47 Year
  Sex: Female

DRUGS (18)
  1. VIOKASE 16 (PANCRELIPASE) [Suspect]
     Indication: PANCREATITIS CHRONIC
     Dosage: 2 TABLETS; TID MANY YEARS
  2. CLARITHROMYCIN [Suspect]
     Dosage: 1 PILL;
     Dates: start: 20090521, end: 20090521
  3. OXYCONTIN [Concomitant]
  4. OXYCODONE HCL [Concomitant]
  5. DOXEPIN50 (DOXEPIN HYDROCHLORIDE [Concomitant]
  6. DILTIAZEM ER (DILTIAZEM HYDROCHLORIDE [Concomitant]
  7. WELCHOL [Concomitant]
  8. AMBIEN [Concomitant]
  9. DETROL [Concomitant]
  10. ALPRAZOLAM [Concomitant]
  11. TRIMETHOBENZAMIDE [Concomitant]
  12. PAROXETINE (PAROXETINE HYDROCHLORIDE [Concomitant]
  13. PRONTIX40 (PANTOPRAZOLE SODIUM [Concomitant]
  14. GABAPENTIN100 [Concomitant]
  15. GABAPENTIN [Concomitant]
  16. TIZANIDINE4 (TIZANIDINE HYDROCHLORIDE [Concomitant]
  17. MELOXIACAM15 [Concomitant]
  18. PRISTIQ50 (DESVENLAFAXINE SUCCINATE [Concomitant]

REACTIONS (5)
  - CARDIO-RESPIRATORY ARREST [None]
  - DRUG SCREEN POSITIVE [None]
  - FEELING ABNORMAL [None]
  - LOSS OF CONSCIOUSNESS [None]
  - PRODUCT COMMINGLING [None]
